FAERS Safety Report 9931171 (Version 1)
Quarter: 2014Q1

REPORT INFORMATION
  Report Type: Spontaneous
  Country: US (occurrence: US)
  Receive Date: 20140228
  Receipt Date: 20140228
  Transmission Date: 20141002
  Serious: Yes (Other)
  Sender: FDA-Public Use
  Company Number: US-AMGEN-USASP2014013680

PATIENT
  Age: 61 Year
  Sex: Female

DRUGS (1)
  1. ENBREL [Suspect]
     Indication: RHEUMATOID ARTHRITIS
     Dosage: 50 MG, QWK
     Route: 065
     Dates: start: 20021119

REACTIONS (4)
  - Macular fibrosis [Not Recovered/Not Resolved]
  - Uveitis [Recovered/Resolved]
  - Cataract [Not Recovered/Not Resolved]
  - Oral herpes [Recovered/Resolved]
